FAERS Safety Report 7904168-1 (Version None)
Quarter: 2011Q4

REPORT INFORMATION
  Report Type: 
  Country: None (occurrence: None)
  Receive Date: 20111109
  Receipt Date: 20111102
  Transmission Date: 20120403
  Serious: Yes (Other)
  Sender: FDA-Public Use
  Company Number: GB-PFIZER INC-2011268767

PATIENT
  Age: 48 Year
  Sex: Male

DRUGS (5)
  1. OXALIPLATIN [Suspect]
     Indication: GASTROINTESTINAL CARCINOMA
  2. FLUOROURACIL [Suspect]
     Indication: GASTROINTESTINAL CARCINOMA
     Dosage: UNK
  3. CAPECITABINE [Suspect]
     Indication: GASTROINTESTINAL CARCINOMA
  4. IRINOTECAN HCL [Suspect]
     Indication: GASTROINTESTINAL CARCINOMA
     Dosage: UNK
  5. AVASTIN [Suspect]
     Indication: GASTROINTESTINAL CARCINOMA
     Dosage: UNK

REACTIONS (4)
  - CARCINOEMBRYONIC ANTIGEN INCREASED [None]
  - HAND FRACTURE [None]
  - DISEASE PROGRESSION [None]
  - COLON CANCER METASTATIC [None]
